FAERS Safety Report 14705330 (Version 8)
Quarter: 2022Q3

REPORT INFORMATION
  Report Type: Spontaneous
  Country: US (occurrence: US)
  Receive Date: 20180402
  Receipt Date: 20220728
  Transmission Date: 20221027
  Serious: Yes (Other)
  Sender: FDA-Public Use
  Company Number: US-PFIZER INC-2018133484

PATIENT
  Age: 62 Year
  Sex: Male
  Weight: 68 kg

DRUGS (29)
  1. PREVACID [Suspect]
     Active Substance: LANSOPRAZOLE
     Dosage: UNK
     Route: 048
     Dates: start: 199301, end: 201612
  2. PROTONIX [Suspect]
     Active Substance: PANTOPRAZOLE SODIUM
     Dosage: UNK
     Route: 048
     Dates: start: 199301, end: 201612
  3. DEXILANT [Suspect]
     Active Substance: DEXLANSOPRAZOLE
     Dosage: UNK
     Route: 048
     Dates: start: 199301, end: 201612
  4. NEXIUM [Suspect]
     Active Substance: ESOMEPRAZOLE MAGNESIUM
     Dosage: UNK
     Route: 048
     Dates: start: 199301, end: 201612
  5. NEXIUM 24HR [Suspect]
     Active Substance: ESOMEPRAZOLE MAGNESIUM
     Indication: Dyspepsia
     Dosage: UNK
     Route: 048
     Dates: start: 199301, end: 201612
  6. NEXIUM 24HR [Suspect]
     Active Substance: ESOMEPRAZOLE MAGNESIUM
     Dosage: 20 MG, 1X/DAY
     Dates: start: 201403, end: 2016
  7. PREVACID 24 HR [Suspect]
     Active Substance: LANSOPRAZOLE
     Dosage: UNK
     Dates: start: 199301, end: 201612
  8. PRILOSEC [Suspect]
     Active Substance: OMEPRAZOLE MAGNESIUM
     Dosage: UNK
     Route: 048
     Dates: start: 199301, end: 201612
  9. PRILOSEC OTC [Suspect]
     Active Substance: OMEPRAZOLE MAGNESIUM
     Indication: Dyspepsia
     Dosage: UNK
     Route: 048
     Dates: start: 199301, end: 201612
  10. PRILOSEC OTC [Suspect]
     Active Substance: OMEPRAZOLE MAGNESIUM
     Dosage: 20 MG, 1X/DAY
     Route: 048
     Dates: start: 200306, end: 2016
  11. ZEGERID [Suspect]
     Active Substance: OMEPRAZOLE\SODIUM BICARBONATE
     Dosage: UNK
     Route: 048
     Dates: start: 199301, end: 201612
  12. OMEPRAZOLE [Suspect]
     Active Substance: OMEPRAZOLE
     Dosage: UNK
     Route: 048
     Dates: start: 199301, end: 201612
  13. ACIPHEX [Suspect]
     Active Substance: RABEPRAZOLE SODIUM
     Dosage: UNK
     Route: 048
     Dates: start: 199301, end: 201612
  14. AMOXICILLIN [Concomitant]
     Active Substance: AMOXICILLIN
     Indication: Infection prophylaxis
     Dosage: UNK
     Dates: start: 20170328, end: 20170417
  15. LISINOPRIL [Concomitant]
     Active Substance: LISINOPRIL
     Indication: Blood pressure measurement
     Dosage: UNK
     Dates: start: 20080616, end: 20100324
  16. ALLOPURINOL [Concomitant]
     Active Substance: ALLOPURINOL
     Indication: Gout
     Dosage: UNK
     Dates: start: 20111203, end: 20120116
  17. SUMATRIPTAN [Concomitant]
     Active Substance: SUMATRIPTAN
     Indication: Migraine
     Dosage: UNK
     Dates: start: 201612
  18. IBUPROFEN [Concomitant]
     Active Substance: IBUPROFEN
     Indication: Headache
     Dosage: UNK
     Dates: start: 200804
  19. PEPCID AC [Concomitant]
     Active Substance: FAMOTIDINE
     Dosage: UNK
     Dates: start: 1993
  20. PEPCID COMPLETE [Concomitant]
     Active Substance: CALCIUM CARBONATE\FAMOTIDINE\MAGNESIUM HYDROXIDE
     Dosage: UNK
     Dates: start: 1993
  21. ZANTAC 75 (OTC) [Concomitant]
     Dosage: UNK
     Dates: start: 1993
  22. HYDRALAZINE HYDROCHLORIDE [Concomitant]
     Active Substance: HYDRALAZINE HYDROCHLORIDE
     Dosage: UNK
  23. AMLODIPINE BESYLATE [Concomitant]
     Active Substance: AMLODIPINE BESYLATE
     Dosage: UNK
  24. METOPROLOL TARTRATE [Concomitant]
     Active Substance: METOPROLOL TARTRATE
     Dosage: UNK
  25. SERTRALINE HYDROCHLORIDE [Concomitant]
     Active Substance: SERTRALINE HYDROCHLORIDE
     Dosage: UNK
  26. CLONIDINE [Concomitant]
     Active Substance: CLONIDINE
     Dosage: UNK
  27. TRAMADOL [Concomitant]
     Active Substance: TRAMADOL
     Dosage: UNK
  28. BUSPIRONE [Concomitant]
     Active Substance: BUSPIRONE HYDROCHLORIDE
     Dosage: UNK
  29. ATENOLOL [Concomitant]
     Active Substance: ATENOLOL

REACTIONS (2)
  - Acute kidney injury [Not Recovered/Not Resolved]
  - Chronic kidney disease [Not Recovered/Not Resolved]

NARRATIVE: CASE EVENT DATE: 20161024
